FAERS Safety Report 4325845-8 (Version None)
Quarter: 2004Q1

REPORT INFORMATION
  Report Type: 
  Country: None (occurrence: None)
  Receive Date: 20040323
  Receipt Date: 20040315
  Transmission Date: 20041129
  Serious: Yes (Other)
  Sender: FDA-Public Use
  Company Number: US-JNJFOC-20040303265

PATIENT
  Age: 70 Year
  Sex: Female
  Weight: 70 kg

DRUGS (10)
  1. NATRECOR [Suspect]
     Indication: CARDIAC FAILURE CONGESTIVE
     Dosage: 142.8 UG BOLUS WEEKLY
     Dates: start: 20030101
  2. HUMULIN 70/30 [Suspect]
     Indication: DIABETES MELLITUS
  3. AMBIEN [Concomitant]
  4. WARFARIN SODIUM [Concomitant]
  5. ISOSORBIDE DINITRATE [Concomitant]
  6. DIGOXIN [Concomitant]
  7. K-DUR 10 [Concomitant]
  8. SPIRONOLACTONE [Concomitant]
  9. TOPROL (METOPROLOL SUCCINATE) [Concomitant]
  10. LISINOPRIL [Concomitant]

REACTIONS (1)
  - HYPOGLYCAEMIA [None]
